FAERS Safety Report 18673049 (Version 2)
Quarter: 2023Q2

REPORT INFORMATION
  Report Type: Spontaneous
  Country: US (occurrence: US)
  Receive Date: 20201228
  Receipt Date: 20230523
  Transmission Date: 20230721
  Serious: No
  Sender: FDA-Public Use
  Company Number: US-PFIZER INC-2020510185

PATIENT
  Age: 71 Year
  Sex: Female

DRUGS (2)
  1. TALZENNA [Suspect]
     Active Substance: TALAZOPARIB TOSYLATE
     Dosage: 1 MG
  2. TALZENNA [Suspect]
     Active Substance: TALAZOPARIB TOSYLATE
     Dosage: 0.25 MG, DAILY (SWALLOW WHOLE WITH WATER, WITH OR WITHOUT FOOD)
     Route: 048

REACTIONS (2)
  - Thinking abnormal [Unknown]
  - Psychiatric symptom [Unknown]
